FAERS Safety Report 7618053-6 (Version None)
Quarter: 2011Q3

REPORT INFORMATION
  Report Type: 
  Country: None (occurrence: None)
  Receive Date: 20110718
  Receipt Date: 20110707
  Transmission Date: 20111222
  Serious: Yes (Hospitalization)
  Sender: FDA-Public Use
  Company Number: US-US-EMD SERONO, INC.-7069833

PATIENT
  Sex: Male

DRUGS (9)
  1. REBIF [Suspect]
     Indication: MULTIPLE SCLEROSIS
     Dates: end: 20110301
  2. VITAMIN D [Concomitant]
  3. OPANA [Concomitant]
  4. RANITIDINE [Concomitant]
  5. BACLOFEN [Concomitant]
  6. ASPIRIN [Concomitant]
  7. GABAPENTIN [Concomitant]
  8. GLYBURIDE [Concomitant]
  9. SEROQUEL [Concomitant]

REACTIONS (3)
  - DYSURIA [None]
  - SOMNOLENCE [None]
  - LOSS OF CONSCIOUSNESS [None]
